FAERS Safety Report 17427552 (Version 2)
Quarter: 2020Q2

REPORT INFORMATION
  Report Type: Spontaneous
  Country: US (occurrence: US)
  Receive Date: 20200218
  Receipt Date: 20200420
  Transmission Date: 20200713
  Serious: Yes (Death, Hospitalization, Other)
  Sender: FDA-Public Use
  Company Number: US-BRISTOL-MYERS SQUIBB COMPANY-BMS-2020-012757

PATIENT
  Age: 60 Year
  Sex: Male

DRUGS (3)
  1. ASPIRIN 81 [Suspect]
     Active Substance: ASPIRIN
     Indication: CHILLS
     Dosage: PRN UNK
     Route: 065
  2. ASPIRIN 81 [Suspect]
     Active Substance: ASPIRIN
     Indication: EMBOLISM
     Dosage: 81 MILLIGRAM, QD
     Route: 065
     Dates: start: 201811
  3. APIXABAN [Suspect]
     Active Substance: APIXABAN
     Indication: CEREBROVASCULAR ACCIDENT PROPHYLAXIS
     Dosage: 5 MILLIGRAM, BID
     Route: 048
     Dates: start: 20190524, end: 20190726

REACTIONS (4)
  - Orthostatic hypotension [Not Recovered/Not Resolved]
  - Chills [Not Recovered/Not Resolved]
  - Pyrexia [Unknown]
  - Haemorrhagic stroke [Fatal]

NARRATIVE: CASE EVENT DATE: 20190701
